FAERS Safety Report 16872049 (Version 2)
Quarter: 2019Q4

REPORT INFORMATION
  Report Type: Spontaneous
  Country: US (occurrence: US)
  Receive Date: 20191001
  Receipt Date: 20191022
  Transmission Date: 20200122
  Serious: No
  Sender: FDA-Public Use
  Company Number: US-INCYTE CORPORATION-2019IN009660

PATIENT

DRUGS (1)
  1. JAKAFI [Suspect]
     Active Substance: RUXOLITINIB
     Dosage: 20 MILLIGRAM
     Route: 048
     Dates: start: 201907

REACTIONS (4)
  - Product dose omission [Unknown]
  - Dizziness [Unknown]
  - Headache [Unknown]
  - Memory impairment [Unknown]

NARRATIVE: CASE EVENT DATE: 20190925
